FAERS Safety Report 4414071-X (Version None)
Quarter: 2004Q3

REPORT INFORMATION
  Report Type: 
  Country: None (occurrence: None)
  Receive Date: 20040803
  Receipt Date: 20040629
  Transmission Date: 20050211
  Serious: Yes (Hospitalization, Other)
  Sender: FDA-Public Use
  Company Number: PHBS2004JP08797

PATIENT
  Age: 82 Year
  Sex: Female

DRUGS (2)
  1. VOLTAREN [Suspect]
     Indication: PYREXIA
     Dosage: 50 MG/DAY
     Route: 054
     Dates: start: 20040319, end: 20040319
  2. PIROMIDIC ACID [Suspect]
     Indication: PYREXIA
     Dosage: 6 DF/DAY
     Route: 048
     Dates: start: 20040327, end: 20040328

REACTIONS (15)
  - BIOPSY SKIN ABNORMAL [None]
  - DRUG ERUPTION [None]
  - EOSINOPHIL COUNT INCREASED [None]
  - ERYTHEMA [None]
  - GOITRE [None]
  - HAEMATOCRIT DECREASED [None]
  - HAEMOGLOBIN DECREASED [None]
  - HYPERSENSITIVITY [None]
  - PURPURA [None]
  - PYREXIA [None]
  - RASH [None]
  - RED BLOOD CELL COUNT DECREASED [None]
  - THYROID FUNCTION TEST ABNORMAL [None]
  - THYROIDITIS SUBACUTE [None]
  - WHITE BLOOD CELL COUNT INCREASED [None]
